FAERS Safety Report 9846369 (Version 1)
Quarter: 2014Q1

REPORT INFORMATION
  Report Type: Spontaneous
  Country: US (occurrence: US)
  Receive Date: 20140127
  Receipt Date: 20140127
  Transmission Date: 20141002
  Serious: No
  Sender: FDA-Public Use
  Company Number: US-BAYER-2014-011878

PATIENT
  Age: 52 Year
  Sex: Female

DRUGS (1)
  1. GADAVIST [Suspect]
     Indication: NUCLEAR MAGNETIC RESONANCE IMAGING
     Dosage: 10 ML, ONCE
     Route: 042
     Dates: start: 20140122, end: 20140122

REACTIONS (5)
  - Nervousness [Recovered/Resolved]
  - Heart rate increased [Recovered/Resolved]
  - Rash erythematous [Recovered/Resolved]
  - Hypertension [Recovered/Resolved]
  - Palpitations [Recovered/Resolved]
